FAERS Safety Report 8158827-9 (Version None)
Quarter: 2012Q1

REPORT INFORMATION
  Report Type: 
  Country: None (occurrence: None)
  Receive Date: 20120223
  Receipt Date: 20120215
  Transmission Date: 20120608
  Serious: Yes (Hospitalization, Other)
  Sender: FDA-Public Use
  Company Number: US-ASTELLAS-2012US001866

PATIENT
  Sex: Male
  Weight: 105 kg

DRUGS (16)
  1. DURAGESIC-100 [Concomitant]
     Indication: ARTHRALGIA
  2. ERLOTINIB HYDROCHLORIDE [Suspect]
     Indication: NON-SMALL CELL LUNG CANCER
     Dosage: 150 MG, UNKNOWN/D
     Route: 048
     Dates: start: 20111221
  3. LISINOPRIL [Concomitant]
     Indication: HYPERTENSION
     Dosage: 40 MG, UNKNOWN/D
     Route: 065
     Dates: start: 20090101
  4. PERCOCET [Concomitant]
     Indication: BACK PAIN
     Dosage: 10 TO 500 MG, PRN
     Route: 065
     Dates: start: 20111214
  5. FLEXANILL [Concomitant]
     Indication: PRODUCT USED FOR UNKNOWN INDICATION
     Dosage: UNK
     Route: 065
  6. BEVACIZUMAB [Suspect]
     Indication: NON-SMALL CELL LUNG CANCER
     Dosage: 1539 MG, UNKNOWN/D
     Route: 042
     Dates: start: 20110921
  7. ZOFRAN [Concomitant]
     Indication: NAUSEA
     Dosage: 8 MG, PRN
     Route: 065
     Dates: start: 20111006
  8. CARBOPLATIN [Suspect]
     Indication: NON-SMALL CELL LUNG CANCER
     Dosage: 750 MG, UNKNOWN/D
     Route: 042
     Dates: start: 20110921
  9. DOCETAXEL [Suspect]
     Indication: NON-SMALL CELL LUNG CANCER
     Dosage: 134 MG, UNKNOWN/D
     Route: 042
     Dates: start: 20110921
  10. METFORMIN HCL [Concomitant]
     Indication: DIABETES MELLITUS
     Dosage: 500 MG, BID
     Route: 065
     Dates: start: 20110711
  11. PROAIR HFA [Concomitant]
     Indication: DYSPNOEA
     Dosage: 90 MG, PRN
     Route: 065
     Dates: start: 20100101
  12. PERCOCET [Concomitant]
     Indication: ARTHRALGIA
  13. CELEXA [Concomitant]
     Indication: HYPERTENSION
     Dosage: 20 MG, UNKNOWN/D
     Route: 065
     Dates: start: 20110711
  14. NAPROXEN [Concomitant]
     Indication: BACK PAIN
     Dosage: 550 MG, BID
     Route: 065
     Dates: start: 20080101
  15. WELLBUTRIN [Concomitant]
     Indication: EX-TOBACCO USER
     Dosage: 2 DF, UID/QD
     Route: 065
     Dates: start: 20110912
  16. DURAGESIC-100 [Concomitant]
     Indication: BACK PAIN
     Dosage: 60 UG, 1 IN 1 HR
     Route: 065
     Dates: start: 20111214

REACTIONS (3)
  - SINUS CONGESTION [None]
  - CHRONIC OBSTRUCTIVE PULMONARY DISEASE [None]
  - INCISION SITE PAIN [None]
